FAERS Safety Report 11603086 (Version 1)
Quarter: 2015Q4

REPORT INFORMATION
  Report Type: Spontaneous
  Country: US (occurrence: None)
  Receive Date: 20151005
  Receipt Date: 20151005
  Transmission Date: 20160304
  Serious: No
  Sender: FDA-Public Use
  Company Number: None

PATIENT
  Age: 18 Year
  Sex: Male
  Weight: 86.18 kg

DRUGS (2)
  1. SODIUM SULFACETAMIDE, SULFUR [Suspect]
     Active Substance: SULFACETAMIDE SODIUM\SULFUR
     Indication: SEBORRHOEA
     Dosage: 1 PAD, APPLIED TO A SURFACE, USUALLY THE SKIN
     Route: 061
     Dates: start: 20150930, end: 20151004
  2. SODIUM SULFACETAMIDE, SULFUR [Suspect]
     Active Substance: SULFACETAMIDE SODIUM\SULFUR
     Indication: ACNE
     Dosage: 1 PAD, APPLIED TO A SURFACE, USUALLY THE SKIN
     Route: 061
     Dates: start: 20150930, end: 20151004

REACTIONS (3)
  - Product physical consistency issue [None]
  - Product substitution issue [None]
  - Product packaging quantity issue [None]

NARRATIVE: CASE EVENT DATE: 20150930
